FAERS Safety Report 19064306 (Version 1)
Quarter: 2021Q1

REPORT INFORMATION
  Report Type: Spontaneous
  Country: US (occurrence: US)
  Receive Date: 20210326
  Receipt Date: 20210326
  Transmission Date: 20210420
  Serious: Yes (Other)
  Sender: FDA-Public Use
  Company Number: NVSC2021US067670

PATIENT
  Age: 59 Year
  Sex: Female

DRUGS (4)
  1. OCTREOTIDE. [Suspect]
     Active Substance: OCTREOTIDE
     Dosage: GRADUAL DOWN?TITRATION OF OCTREOTIDE DOSE
     Route: 065
  2. NOREPINEPHRINE. [Concomitant]
     Active Substance: NOREPINEPHRINE
     Indication: LABILE BLOOD PRESSURE
     Dosage: UNK (LOW DOSES)
     Route: 065
  3. OCTREOTIDE. [Suspect]
     Active Substance: OCTREOTIDE
     Indication: CARCINOID CRISIS
     Dosage: 500 MCG/HOUR
     Route: 041
  4. OCTREOTIDE. [Suspect]
     Active Substance: OCTREOTIDE

REACTIONS (1)
  - Arteriospasm coronary [Recovering/Resolving]
